FAERS Safety Report 4625172-5 (Version None)
Quarter: 2005Q2

REPORT INFORMATION
  Report Type: 
  Country: None (occurrence: None)
  Receive Date: 20050325
  Receipt Date: 20050125
  Transmission Date: 20051028
  Serious: No
  Sender: FDA-Public Use
  Company Number: USA050189174

PATIENT
  Age: 70 Year
  Sex: Female

DRUGS (2)
  1. FORTEO [Suspect]
     Indication: FRACTURE
     Dates: start: 20041001
  2. FORTEO [Suspect]
     Indication: SPINAL CORD INJURY SACRAL
     Dates: start: 20041001

REACTIONS (2)
  - IMPAIRED HEALING [None]
  - INJECTION SITE ERYTHEMA [None]
